FAERS Safety Report 7607523-2 (Version None)
Quarter: 2011Q3

REPORT INFORMATION
  Report Type: 
  Country: None (occurrence: None)
  Receive Date: 20110713
  Receipt Date: 20110708
  Transmission Date: 20111222
  Serious: Yes (Hospitalization)
  Sender: FDA-Public Use
  Company Number: US-AMGEN-USACT2011012231

PATIENT
  Age: 61 Year
  Sex: Female
  Weight: 73.923 kg

DRUGS (8)
  1. DENOSUMAB [Suspect]
     Indication: OSTEOPOROSIS POSTMENOPAUSAL
     Dosage: 60 MG, Q6MO
     Dates: start: 20061205, end: 20100614
  2. FLEXERIL [Concomitant]
     Dosage: 10 MG, PRN
  3. VITAMIN B-12 [Concomitant]
  4. ERGOCALCIFEROL [Concomitant]
  5. PROTEINS NOS [Concomitant]
  6. LORTAB [Concomitant]
  7. ASPIRIN [Concomitant]
     Dosage: 81 MG, QD
  8. CALCIUM CARBONATE [Concomitant]

REACTIONS (1)
  - SPINAL COMPRESSION FRACTURE [None]
